FAERS Safety Report 4673754-7 (Version None)
Quarter: 2005Q2

REPORT INFORMATION
  Report Type: 
  Country: None (occurrence: None)
  Receive Date: 20050524
  Receipt Date: 20050511
  Transmission Date: 20051028
  Serious: Yes (Hospitalization)
  Sender: FDA-Public Use
  Company Number: HQWYE773618MAY05

PATIENT
  Age: 66 Year
  Sex: Male

DRUGS (7)
  1. ETODOLAC [Suspect]
     Indication: BACK PAIN
     Dosage: 400 MG 1X PER 1 DAY
     Route: 048
     Dates: start: 20050105, end: 20050209
  2. ALLOPURINOL [Suspect]
     Indication: HYPERURICAEMIA
     Dosage: 100 MG 1X PER 1 DAY
     Route: 048
     Dates: start: 20030909
  3. AMLODIPINE BESYLATE [Suspect]
     Indication: ESSENTIAL HYPERTENSION
     Dosage: 5 MG 1X PER 1 DAY
     Route: 048
     Dates: start: 20020820, end: 20050307
  4. ATORVASTATIN CALCIUM [Suspect]
     Indication: HYPERCHOLESTEROLAEMIA
     Dosage: 10 MG 1X PER 1 DAY
     Route: 048
     Dates: start: 20020820
  5. ETIZOLAM (ETIZOLAM, ) [Suspect]
     Indication: ANXIETY DISORDER
     Dosage: 1.5 MG 1X PER 1 DAY
     Route: 048
     Dates: start: 20041007
  6. GASLON (IRSOGLADINE MALEATE, ) [Suspect]
     Indication: GASTRITIS
     Dosage: 4 MG 1X PER 1 DAY
     Route: 048
     Dates: start: 20050105, end: 20050209
  7. LIMAPROST (LIMAPROST, ) [Suspect]
     Indication: OSTEOPOROSIS
     Dosage: 15 MG 1X PER 1 DAY
     Route: 048
     Dates: start: 20050105, end: 20050209

REACTIONS (8)
  - ASPARTATE AMINOTRANSFERASE INCREASED [None]
  - DECREASED APPETITE [None]
  - DEHYDRATION [None]
  - DIALYSIS [None]
  - DRUG INEFFECTIVE [None]
  - HAEMATOCRIT DECREASED [None]
  - HAEMOGLOBIN DECREASED [None]
  - RENAL FAILURE ACUTE [None]
